FAERS Safety Report 8581486-8 (Version None)
Quarter: 2012Q2

REPORT INFORMATION
  Report Type: 
  Country: None (occurrence: None)
  Receive Date: 20120423
  Receipt Date: 20100430
  Transmission Date: 20120825
  Serious: Yes (Hospitalization)
  Sender: FDA-Public Use
  Company Number: PHHY2010US18112

PATIENT
  Age: 71 Year
  Sex: Male

DRUGS (2)
  1. EXJADE [Suspect]
     Indication: PANCYTOPENIA
     Dosage: 1250 MG, QD, ORAL 1250 MG, QD, ORAL
     Route: 048
     Dates: start: 20100211, end: 20100325
  2. EXJADE [Suspect]
     Indication: PANCYTOPENIA
     Dosage: 1250 MG, QD, ORAL 1250 MG, QD, ORAL
     Route: 048
     Dates: start: 20100430

REACTIONS (4)
  - RASH [None]
  - PYREXIA [None]
  - NEUTROPENIA [None]
  - PRURITUS [None]
